FAERS Safety Report 4275719-6 (Version None)
Quarter: 2004Q1

REPORT INFORMATION
  Report Type: 
  Country: None (occurrence: None)
  Receive Date: 20040121
  Receipt Date: 20040107
  Transmission Date: 20041129
  Serious: Yes (Other)
  Sender: FDA-Public Use
  Company Number: US-GLAXOSMITHKLINE-A0493821A

PATIENT
  Sex: Female

DRUGS (12)
  1. AVANDIA [Suspect]
     Route: 048
     Dates: start: 19991206
  2. GLUCOPHAGE [Concomitant]
     Dosage: 500MG TWICE PER DAY
  3. AXID [Concomitant]
     Dosage: 150MG THREE TIMES PER DAY
  4. HUMULIN 70/30 [Concomitant]
  5. XANAX [Concomitant]
  6. CARDIZEM [Concomitant]
  7. PREVACID [Concomitant]
  8. SEPTRA [Concomitant]
  9. IMDUR [Concomitant]
  10. LASIX [Concomitant]
  11. POTASSIUM [Concomitant]
  12. COMBIVENT [Concomitant]

REACTIONS (1)
  - HEART INJURY [None]
